FAERS Safety Report 24991655 (Version 1)
Quarter: 2025Q1

REPORT INFORMATION
  Report Type: Spontaneous
  Country: GB (occurrence: GB)
  Receive Date: 20250220
  Receipt Date: 20250220
  Transmission Date: 20250409
  Serious: Yes (Death)
  Sender: PFIZER
  Company Number: GB-PFIZER INC-PV202500020358

PATIENT
  Age: 68 Year
  Sex: Female

DRUGS (1)
  1. SOMAVERT [Suspect]
     Active Substance: PEGVISOMANT
     Dosage: 10 MG, DAILY

REACTIONS (1)
  - Death [Fatal]

NARRATIVE: CASE EVENT DATE: 20241201
